FAERS Safety Report 10014043 (Version 3)
Quarter: 2014Q2

REPORT INFORMATION
  Report Type: Spontaneous
  Country: IS (occurrence: IS)
  Receive Date: 20140317
  Receipt Date: 20140418
  Transmission Date: 20141212
  Serious: Yes (Hospitalization)
  Sender: FDA-Public Use
  Company Number: PHHY2014IS028611

PATIENT
  Age: 71 Year
  Sex: Male

DRUGS (12)
  1. LEPONEX [Suspect]
     Indication: SCHIZOPHRENIA
     Dosage: 25 MG, AT NIGHT
  2. LEPONEX [Suspect]
     Indication: BIPOLAR DISORDER
     Dosage: 100 MG, QD
  3. LEPONEX [Suspect]
     Dosage: 300 MG, PER DAY
  4. OLANZAPINE [Suspect]
     Indication: SCHIZOPHRENIA
     Dosage: 10 MG, BID
  5. OLANZAPINE [Suspect]
     Indication: BIPOLAR DISORDER
     Dosage: 10 MG, QD
  6. CHLORPROMAZINE [Suspect]
     Indication: SCHIZOPHRENIA
     Dosage: 100 MG, QD
  7. RISPERIDONE [Suspect]
     Indication: SCHIZOPHRENIA
     Dosage: 4 MG, BID
  8. PROMETHAZINE [Suspect]
     Indication: SCHIZOPHRENIA
     Dosage: 25 MG, AT NIGHT
  9. LAMOTRIGINE [Concomitant]
     Indication: SCHIZOPHRENIA
     Dosage: 25 MG, QD
  10. LAMOTRIGINE [Concomitant]
     Indication: BIPOLAR DISORDER
     Dosage: 200 MG, PER DAY
  11. ZOPICLONE [Concomitant]
     Indication: SCHIZOPHRENIA
  12. ZOPICLONE [Concomitant]
     Indication: BIPOLAR DISORDER

REACTIONS (5)
  - Leukopenia [Recovered/Resolved]
  - Neutropenia [Recovered/Resolved]
  - Pneumonia [Recovered/Resolved]
  - Pyrexia [Recovered/Resolved]
  - Therapeutic response decreased [Unknown]
